FAERS Safety Report 8606601-9 (Version None)
Quarter: 2012Q3

REPORT INFORMATION
  Report Type: 
  Country: None (occurrence: None)
  Receive Date: 20120820
  Receipt Date: 20120813
  Transmission Date: 20120928
  Serious: Yes (Other)
  Sender: FDA-Public Use
  Company Number: US-BAYER-2012-083814

PATIENT
  Age: 37 Year
  Sex: Female

DRUGS (2)
  1. BETASERON [Suspect]
     Dosage: 0.25 ML, QOD
     Route: 058
     Dates: start: 20120728, end: 20120801
  2. BETASERON [Suspect]
     Dosage: 0.5 ML, QOD
     Route: 058
     Dates: start: 20120801

REACTIONS (1)
  - FEELING ABNORMAL [None]
